FAERS Safety Report 7680013-7 (Version None)
Quarter: 2011Q3

REPORT INFORMATION
  Report Type: 
  Country: None (occurrence: None)
  Receive Date: 20110812
  Receipt Date: 20110804
  Transmission Date: 20111222
  Serious: Yes (Hospitalization)
  Sender: FDA-Public Use
  Company Number: US-NOVOPROD-332767

PATIENT
  Age: 64 Year
  Sex: Male
  Weight: 102.49 kg

DRUGS (2)
  1. VICTOZA [Suspect]
     Dosage: 1.2 MG, QD X 1 WEEK
     Route: 058
     Dates: end: 20110715
  2. VICTOZA [Suspect]
     Indication: TYPE 2 DIABETES MELLITUS
     Dosage: .6 MG, QD X 1 WEEK
     Route: 058
     Dates: start: 20110701

REACTIONS (2)
  - PANCREATITIS ACUTE [None]
  - CHOLELITHIASIS [None]
